FAERS Safety Report 5235270-3 (Version None)
Quarter: 2007Q1

REPORT INFORMATION
  Report Type: 
  Country: None (occurrence: None)
  Receive Date: 20070212
  Receipt Date: 20070131
  Transmission Date: 20070707
  Serious: Yes (Other)
  Sender: FDA-Public Use
  Company Number: CA-JNJFOC-20061005703

PATIENT
  Sex: Male
  Weight: 88 kg

DRUGS (10)
  1. RISPERDAL CONSTA [Suspect]
     Route: 030
  2. RISPERDAL CONSTA [Suspect]
     Indication: DRUG USE FOR UNKNOWN INDICATION
     Route: 030
  3. VALPROIC ACID [Concomitant]
     Indication: AFFECTIVE DISORDER
     Route: 048
  4. STELAZINE [Concomitant]
     Route: 048
  5. ORAP [Concomitant]
     Route: 048
  6. DALMANE [Concomitant]
     Route: 048
  7. DALMANE [Concomitant]
     Route: 048
  8. XANAX [Concomitant]
     Route: 048
  9. NOZINAN [Concomitant]
  10. NEURONTIN [Concomitant]

REACTIONS (7)
  - BLOOD CREATINE PHOSPHOKINASE INCREASED [None]
  - FALL [None]
  - HYPERSENSITIVITY [None]
  - HYPONATRAEMIA [None]
  - LOSS OF CONSCIOUSNESS [None]
  - PRURITUS [None]
  - RASH GENERALISED [None]
